FAERS Safety Report 25009246 (Version 2)
Quarter: 2025Q2

REPORT INFORMATION
  Report Type: Spontaneous
  Country: US (occurrence: US)
  Receive Date: 20250225
  Receipt Date: 20250425
  Transmission Date: 20250717
  Serious: Yes (Other)
  Sender: PFIZER
  Company Number: US-PFIZER INC-202500041724

PATIENT
  Age: 68 Year
  Sex: Female
  Weight: 61.23 kg

DRUGS (5)
  1. LEVOTHYROXINE [Suspect]
     Active Substance: LEVOTHYROXINE
     Indication: Autoimmune thyroiditis
     Dosage: 100 UG, 1X/DAY
     Route: 048
  2. GABAPENTIN [Concomitant]
     Active Substance: GABAPENTIN
     Indication: Neuropathy peripheral
     Dosage: 300 MILLIGRAMS IN THE MORNING, 600 MILLIGRAMS AT NIGHT
  3. GABAPENTIN [Concomitant]
     Active Substance: GABAPENTIN
     Indication: Fibromyalgia
  4. MIRAPEX [Concomitant]
     Active Substance: PRAMIPEXOLE DIHYDROCHLORIDE
     Indication: Restless legs syndrome
     Dosage: Q HS
  5. CYMBALTA [Concomitant]
     Active Substance: DULOXETINE HYDROCHLORIDE
     Indication: Fibromyalgia
     Dosage: 20 MG, 1X/DAY

REACTIONS (4)
  - Diarrhoea [Recovered/Resolved]
  - Haemorrhoids [Unknown]
  - Proctitis [Unknown]
  - Blood thyroid stimulating hormone abnormal [Recovered/Resolved]

NARRATIVE: CASE EVENT DATE: 20240101
